FAERS Safety Report 6425820-3 (Version None)
Quarter: 2009Q4

REPORT INFORMATION
  Report Type: 
  Country: None (occurrence: None)
  Receive Date: 20091103
  Receipt Date: 20081113
  Transmission Date: 20100525
  Serious: No
  Sender: FDA-Public Use
  Company Number: US-ABBOTT-08P-163-0487702-00

PATIENT
  Age: 17 Year
  Sex: Female

DRUGS (2)
  1. BIAXIN [Suspect]
     Indication: BRONCHITIS
     Route: 048
     Dates: start: 20081003
  2. BIAXIN [Suspect]
     Indication: SINUSITIS

REACTIONS (6)
  - ARTHRALGIA [None]
  - FATIGUE [None]
  - HEADACHE [None]
  - INSOMNIA [None]
  - RESTLESSNESS [None]
  - TREMOR [None]
